FAERS Safety Report 4558871-4 (Version None)
Quarter: 2005Q1

REPORT INFORMATION
  Report Type: 
  Country: None (occurrence: None)
  Receive Date: 20050121
  Receipt Date: 20050121
  Transmission Date: 20050727
  Serious: Yes (Other)
  Sender: FDA-Public Use
  Company Number: None

PATIENT
  Sex: Female
  Weight: 122.4712 kg

DRUGS (8)
  1. METHIMAZOLE [Suspect]
     Indication: HYPERTHYROIDISM
     Dosage: 5MG   1 PER DAY   ORAL
     Route: 048
     Dates: start: 20040929, end: 20041229
  2. DYAZIDE [Concomitant]
  3. BUSPAR [Concomitant]
  4. DESERYL [Concomitant]
  5. EXCEDERIN [Concomitant]
  6. TAGAMENT [Concomitant]
  7. CLARITIN [Concomitant]
  8. ADVIL [Concomitant]

REACTIONS (1)
  - URINE BARBITURATES INCREASED [None]
